FAERS Safety Report 10928769 (Version 1)
Quarter: 2015Q1

REPORT INFORMATION
  Report Type: Spontaneous
  Country: US (occurrence: None)
  Receive Date: 20150129
  Receipt Date: 20150129
  Transmission Date: 20150721
  Serious: No
  Sender: FDA-Public Use
  Company Number: A-US2014-102542

PATIENT
  Age: 78 Year
  Sex: Female

DRUGS (3)
  1. OPSUMIT [Suspect]
     Active Substance: MACITENTAN
     Indication: PULMONARY ARTERIAL HYPERTENSION
     Route: 048
     Dates: start: 20140710
  2. OXYGEN. [Concomitant]
     Active Substance: OXYGEN
  3. ASPIRIN (ACETYLSALICYLIC ACID) [Concomitant]
     Active Substance: ASPIRIN

REACTIONS (4)
  - Somnolence [None]
  - Fatigue [None]
  - Dyspnoea [None]
  - Asthenia [None]
